FAERS Safety Report 9938178 (Version 2)
Quarter: 2014Q1

REPORT INFORMATION
  Report Type: Report from Study
  Country: US (occurrence: US)
  Receive Date: 20140303
  Receipt Date: 20140303
  Transmission Date: 20141002
  Serious: No
  Sender: FDA-Public Use
  Company Number: US-ABBVIE-12P-163-0958945-00

PATIENT
  Age: 58 Year
  Sex: Female

DRUGS (9)
  1. HUMIRA [Suspect]
     Indication: RHEUMATOID ARTHRITIS
     Route: 058
  2. FORTEO [Concomitant]
     Indication: OSTEOPOROSIS
  3. FOLIC ACID [Concomitant]
     Indication: RHEUMATOID ARTHRITIS
     Route: 048
  4. VITAMIN D [Concomitant]
     Indication: RHEUMATOID ARTHRITIS
     Route: 048
  5. IRON [Concomitant]
     Indication: ANAEMIA
     Route: 048
  6. LIPITOR [Concomitant]
     Indication: BLOOD CHOLESTEROL INCREASED
     Route: 048
  7. TRADJENTA [Concomitant]
     Indication: DIABETES MELLITUS
  8. VITAMIN B12 [Concomitant]
  9. FIORICET [Concomitant]
     Indication: HEADACHE

REACTIONS (7)
  - Injection site pain [Recovered/Resolved]
  - Injection site haemorrhage [Recovered/Resolved]
  - Product container issue [Recovered/Resolved]
  - Product container issue [Recovered/Resolved]
  - Oropharyngeal pain [Unknown]
  - Sinus headache [Unknown]
  - Injection site pain [Unknown]
